FAERS Safety Report 9489980 (Version 2)
Quarter: 2014Q1

REPORT INFORMATION
  Report Type: Spontaneous
  Country: US (occurrence: US)
  Receive Date: 20130829
  Receipt Date: 20140110
  Transmission Date: 20141002
  Serious: Yes (Other)
  Sender: FDA-Public Use
  Company Number: US-TEVA-428548USA

PATIENT
  Age: 23 Year
  Sex: Female
  Weight: 55.84 kg

DRUGS (4)
  1. PARAGARD 380A [Suspect]
     Indication: CONTRACEPTION
     Route: 015
     Dates: start: 20130404, end: 20130829
  2. PARAGARD 380A [Suspect]
     Route: 015
     Dates: start: 20131001
  3. CYTOTEC [Concomitant]
     Dosage: 2 UNKNOWN DAILY;
     Route: 048
  4. BEYAZ [Concomitant]
     Dosage: 1 UNKNOWN DAILY;
     Route: 048

REACTIONS (2)
  - Embedded device [Recovered/Resolved]
  - Abdominal pain [Recovered/Resolved]
